FAERS Safety Report 9294107 (Version 2)
Quarter: 2013Q2

REPORT INFORMATION
  Report Type: Spontaneous
  Country: US (occurrence: None)
  Receive Date: 20130514
  Receipt Date: 20130521
  Transmission Date: 20140414
  Serious: Yes (Hospitalization, Other)
  Sender: FDA-Public Use
  Company Number: JPI-P-031498

PATIENT
  Age: 65 Year
  Sex: Female
  Weight: 65.77 kg

DRUGS (4)
  1. XYREM [Suspect]
     Indication: NARCOLEPSY
     Dosage: 6 GM (3 GM, 2 IN 1 D)
     Route: 048
     Dates: start: 20051212
  2. ATORVASTATIN [Concomitant]
  3. PREGABALIN [Concomitant]
  4. METOPROLOL [Concomitant]

REACTIONS (7)
  - Heart rate increased [None]
  - Heart rate irregular [None]
  - Fatigue [None]
  - Catheterisation cardiac [None]
  - Surgical procedure repeated [None]
  - Procedural complication [None]
  - Stent placement [None]
